FAERS Safety Report 16106100 (Version 1)
Quarter: 2019Q1

REPORT INFORMATION
  Report Type: Spontaneous
  Country: JP (occurrence: JP)
  Receive Date: 20190322
  Receipt Date: 20190322
  Transmission Date: 20190418
  Serious: Yes (Other)
  Sender: FDA-Public Use
  Company Number: JP-PFIZER INC-2019125650

PATIENT

DRUGS (1)
  1. ANCARON [Suspect]
     Active Substance: AMIODARONE HYDROCHLORIDE
     Dosage: 2 DF, DAILY
     Route: 048
     Dates: start: 2019

REACTIONS (3)
  - Nausea [Unknown]
  - Gallbladder enlargement [Unknown]
  - Biliary tract disorder [Unknown]

NARRATIVE: CASE EVENT DATE: 2019
